FAERS Safety Report 24759998 (Version 1)
Quarter: 2024Q4

REPORT INFORMATION
  Report Type: Spontaneous
  Country: US (occurrence: US)
  Receive Date: 20241220
  Receipt Date: 20241220
  Transmission Date: 20250115
  Serious: No
  Sender: APOTEX
  Company Number: US-APOTEX-2023AP017702

PATIENT
  Age: 44 Year
  Sex: Female

DRUGS (1)
  1. TESTOSTERONE [Suspect]
     Active Substance: TESTOSTERONE
     Indication: Product used for unknown indication
     Dosage: UNK
     Route: 067

REACTIONS (5)
  - Dysphonia [Unknown]
  - Hirsutism [Unknown]
  - Condition aggravated [Unknown]
  - Menstrual disorder [Unknown]
  - Accidental exposure to product [Unknown]
